FAERS Safety Report 21701195 (Version 1)
Quarter: 2022Q4

REPORT INFORMATION
  Report Type: Spontaneous
  Country: CN (occurrence: CN)
  Receive Date: 20221208
  Receipt Date: 20221208
  Transmission Date: 20230113
  Serious: Yes (Hospitalization, Other)
  Sender: FDA-Public Use
  Company Number: CN-009507513-2212CHN001872

PATIENT
  Age: 51 Year
  Sex: Female

DRUGS (1)
  1. KEYTRUDA [Suspect]
     Active Substance: PEMBROLIZUMAB
     Dates: start: 20210926

REACTIONS (12)
  - Immune-mediated myocarditis [Unknown]
  - Aortic valve incompetence [Recovered/Resolved]
  - Malignant neoplasm progression [Unknown]
  - Immune-mediated hepatitis [Unknown]
  - Increased upper airway secretion [Recovered/Resolved]
  - Sensation of foreign body [Recovered/Resolved]
  - Blood pressure decreased [Recovered/Resolved]
  - Hypophagia [Recovered/Resolved]
  - Blood cholinesterase increased [Unknown]
  - White blood cell count decreased [Recovered/Resolved]
  - Blood glucose increased [Unknown]
  - Myositis [Unknown]

NARRATIVE: CASE EVENT DATE: 20211017
